FAERS Safety Report 5388974-6 (Version None)
Quarter: 2007Q3

REPORT INFORMATION
  Report Type: 
  Country: None (occurrence: None)
  Receive Date: 20070713
  Receipt Date: 20070713
  Transmission Date: 20080115
  Serious: No
  Sender: FDA-Public Use
  Company Number: None

PATIENT
  Sex: Male
  Weight: 62.1428 kg

DRUGS (6)
  1. RITUXIMAB [Suspect]
     Indication: EXTRANODAL MARGINAL ZONE B-CELL LYMPHOMA (MALT TYPE)
     Dosage: 623 MG 1ST INFUSION IV
     Route: 042
     Dates: start: 20070711
  2. RITUXIMAB [Suspect]
  3. RITUXIMAB [Suspect]
  4. ADVAIR DISKUS 100/50 [Concomitant]
  5. ALBUTEROL [Concomitant]
  6. MEVACOR [Concomitant]

REACTIONS (2)
  - ASTHMA [None]
  - INFUSION RELATED REACTION [None]
